FAERS Safety Report 8112263-X (Version None)
Quarter: 2012Q1

REPORT INFORMATION
  Report Type: 
  Country: None (occurrence: None)
  Receive Date: 20120203
  Receipt Date: 20120203
  Transmission Date: 20120608
  Serious: Yes (Life-Threatening, Hospitalization, Disabling)
  Sender: FDA-Public Use
  Company Number: None

PATIENT
  Age: 40 Year
  Sex: Male
  Weight: 77.11 kg

DRUGS (15)
  1. DEXILANT [Concomitant]
  2. CHANTIX [Concomitant]
  3. ENTOCORT EC [Concomitant]
  4. OMEPRAZOLE [Concomitant]
  5. BUSPIRONE HCL [Concomitant]
     Indication: ANXIETY
     Dosage: 10
     Route: 048
     Dates: start: 20111107, end: 20111120
  6. SERTRALINE HYDROCHLORIDE [Concomitant]
  7. BUDESONIDE [Concomitant]
  8. ODANSETRON [Concomitant]
  9. CITALOPRAM HYDROBROMIDE [Suspect]
     Indication: ANXIETY
     Dosage: 60.0 MG
     Route: 048
     Dates: start: 20110621, end: 20111120
  10. TRAMADOL HCL [Concomitant]
  11. CLONAZOPAM [Concomitant]
     Route: 048
  12. ZOLPIDEM [Concomitant]
  13. ALPRAZOLAM [Concomitant]
     Route: 048
  14. TRAZODONE HCL [Concomitant]
     Route: 048
  15. SEROQUEL [Concomitant]

REACTIONS (7)
  - PSYCHOTIC DISORDER [None]
  - MYOCLONUS [None]
  - SUICIDE ATTEMPT [None]
  - SEROTONIN SYNDROME [None]
  - HAEMOPTYSIS [None]
  - WITHDRAWAL SYNDROME [None]
  - AGGRESSION [None]
